FAERS Safety Report 19502618 (Version 1)
Quarter: 2021Q3

REPORT INFORMATION
  Report Type: Spontaneous
  Country: US (occurrence: US)
  Receive Date: 20210707
  Receipt Date: 20210707
  Transmission Date: 20211014
  Serious: No
  Sender: FDA-Public Use
  Company Number: US-ORGANON-O2107USA000163

PATIENT
  Age: 71 Year
  Sex: Male

DRUGS (7)
  1. CALCIPOTRIENE AND BETAMETHASONE DIPROPIONATE [Concomitant]
     Active Substance: BETAMETHASONE DIPROPIONATE\CALCIPOTRIENE
     Indication: GRANULOMA ANNULARE
     Dosage: UNK
  2. TRIAMCINOLONE [Concomitant]
     Active Substance: TRIAMCINOLONE
     Indication: GRANULOMA ANNULARE
     Dosage: UNK
     Route: 026
  3. DAPSONE. [Concomitant]
     Active Substance: DAPSONE
     Indication: GRANULOMA ANNULARE
     Dosage: UNK
  4. NIACINAMIDE [Concomitant]
     Active Substance: NIACINAMIDE
     Indication: GRANULOMA ANNULARE
     Dosage: UNK
  5. SINGULAIR [Suspect]
     Active Substance: MONTELUKAST SODIUM
     Indication: GRANULOMA ANNULARE
     Dosage: UNK
     Route: 048
  6. ASPIRIN [ACETYLSALICYLIC ACID] [Concomitant]
     Active Substance: ASPIRIN
     Indication: GRANULOMA ANNULARE
     Dosage: UNK
  7. LASER [Concomitant]
     Active Substance: DEVICE
     Indication: GRANULOMA ANNULARE
     Dosage: UNK

REACTIONS (1)
  - Product use in unapproved indication [Unknown]
